FAERS Safety Report 25089902 (Version 1)
Quarter: 2025Q1

REPORT INFORMATION
  Report Type: Report from Study
  Country: BR (occurrence: BR)
  Receive Date: 20250318
  Receipt Date: 20250318
  Transmission Date: 20250409
  Serious: Yes (Hospitalization)
  Sender: ALNYLAM PHARMACEUTICALS
  Company Number: BR-ALNYLAM PHARMACEUTICALS, INC.-ALN-2025-001367

PATIENT

DRUGS (2)
  1. GIVLAARI [Suspect]
     Active Substance: GIVOSIRAN SODIUM
     Indication: Porphyria acute
     Dosage: UNK, MONTHLY (EVERY 30 DAYS)
     Route: 058
     Dates: start: 20230315, end: 20230315
  2. GIVLAARI [Suspect]
     Active Substance: GIVOSIRAN SODIUM
     Dosage: UNK, MONTHLY (EVERY 30 DAYS)
     Route: 058
     Dates: start: 20250125, end: 20250125

REACTIONS (5)
  - Pain [Unknown]
  - Confusional state [Unknown]
  - Pain in extremity [Recovered/Resolved]
  - Therapeutic response shortened [Unknown]
  - Ill-defined disorder [Unknown]
